FAERS Safety Report 5054835-5 (Version None)
Quarter: 2006Q3

REPORT INFORMATION
  Report Type: 
  Country: None (occurrence: None)
  Receive Date: 20060717
  Receipt Date: 20060705
  Transmission Date: 20061208
  Serious: Yes (Other)
  Sender: FDA-Public Use
  Company Number: 2006083981

PATIENT
  Age: 74 Year
  Sex: Female
  Weight: 86.1834 kg

DRUGS (7)
  1. LIPITOR [Suspect]
     Indication: BLOOD CHOLESTEROL INCREASED
     Dosage: 10 MG (10 MG, 1 IN 1 D)
     Dates: start: 20000101
  2. DITROPAN [Concomitant]
  3. VITAMINS [Concomitant]
  4. PREVACID [Concomitant]
  5. ACETYLSALICYLIC ACID SRT [Concomitant]
  6. ZOLOFT [Concomitant]
  7. CALCIUM GLUCONATE [Concomitant]

REACTIONS (4)
  - BREAST CANCER FEMALE [None]
  - GALLBLADDER OPERATION [None]
  - KNEE OPERATION [None]
  - RECTAL FISTULA REPAIR [None]
